FAERS Safety Report 6015847-8 (Version None)
Quarter: 2008Q4

REPORT INFORMATION
  Report Type: 
  Country: None (occurrence: None)
  Receive Date: 20081222
  Receipt Date: 20081219
  Transmission Date: 20090506
  Serious: Yes (Hospitalization)
  Sender: FDA-Public Use
  Company Number: A0761140A

PATIENT
  Age: 84 Year
  Sex: Male

DRUGS (15)
  1. COREG CR [Suspect]
     Indication: DRUG USE FOR UNKNOWN INDICATION
     Dates: start: 20080101, end: 20080901
  2. ESOMEPRAZOLE MAGNESIUM [Concomitant]
     Route: 048
  3. INOSITOL [Concomitant]
     Route: 048
  4. NIACIN [Concomitant]
     Route: 048
     Dates: start: 20070227
  5. EZETIMIBE [Concomitant]
     Route: 048
     Dates: start: 20040101
  6. SIMVASTATIN [Concomitant]
     Route: 048
     Dates: start: 20040101
  7. DIPHENHYDRAMINE HCL [Concomitant]
     Route: 048
     Dates: start: 20060101
  8. LOVAZA [Concomitant]
     Route: 048
     Dates: start: 20050101
  9. MULTI-VITAMIN [Concomitant]
     Route: 048
     Dates: start: 20050101
  10. CHONDROITIN [Concomitant]
     Route: 048
     Dates: start: 20040101
  11. GLUCOSAMINE [Concomitant]
     Route: 048
     Dates: start: 20040101
  12. HYDROCHLOROTHIAZIDE [Concomitant]
     Route: 048
     Dates: start: 20080711
  13. ACETYLSALICYLIC ACID [Concomitant]
     Route: 048
     Dates: start: 20050101
  14. OLMESARTAN MEDOXOMIL [Concomitant]
     Route: 048
     Dates: start: 20080711
  15. CETIRIZINE HCL [Concomitant]
     Route: 048
     Dates: start: 20080711

REACTIONS (3)
  - BRADYCARDIA [None]
  - HYPOTENSION [None]
  - PRESYNCOPE [None]
